FAERS Safety Report 7955154-7 (Version None)
Quarter: 2011Q4

REPORT INFORMATION
  Report Type: 
  Country: None (occurrence: None)
  Receive Date: 20111202
  Receipt Date: 20111122
  Transmission Date: 20120403
  Serious: Yes (Other)
  Sender: FDA-Public Use
  Company Number: US-JNJFOC-20111013463

PATIENT
  Sex: Female
  Weight: 51.71 kg

DRUGS (8)
  1. REMICADE [Suspect]
     Route: 042
     Dates: start: 20030101
  2. METHOTREXATE [Concomitant]
     Indication: JUVENILE ARTHRITIS
     Route: 065
  3. FIORICET [Concomitant]
     Indication: HEADACHE
  4. LEUCOVORIN CALCIUM [Concomitant]
     Indication: JUVENILE ARTHRITIS
  5. NEXIUM [Concomitant]
     Indication: GASTROINTESTINAL DISORDER
  6. VESICARE [Concomitant]
  7. METOPROLOL TARTRATE [Concomitant]
     Indication: BLOOD PRESSURE ABNORMAL
  8. REMICADE [Suspect]
     Indication: JUVENILE ARTHRITIS
     Route: 042
     Dates: start: 20110928

REACTIONS (1)
  - SYSTEMIC LUPUS ERYTHEMATOSUS RASH [None]
